FAERS Safety Report 6835582-3 (Version None)
Quarter: 2010Q3

REPORT INFORMATION
  Report Type: 
  Country: None (occurrence: None)
  Receive Date: 20100713
  Receipt Date: 20100701
  Transmission Date: 20110219
  Serious: Yes (Death)
  Sender: FDA-Public Use
  Company Number: US-ELI_LILLY_AND_COMPANY-US201005006876

PATIENT
  Age: 57 Year
  Sex: Male
  Weight: 68.027 kg

DRUGS (13)
  1. FORTEO [Suspect]
     Indication: OSTEOPOROSIS
     Dosage: 20 UG, DAILY (1/D)
  2. REYATAZ [Concomitant]
     Dosage: 300 MG, DAILY (1/D)
  3. TRUVADA [Concomitant]
     Dosage: UNK, DAILY (1/D)
  4. NORVIR [Concomitant]
     Dosage: 100 MG, UNK
  5. MIRTAZAPINE [Concomitant]
     Dosage: 30 MG, DAILY (1/D)
  6. COMBIVENT [Concomitant]
     Route: 055
  7. ALENDRONATE [Concomitant]
     Dosage: 10 MG, DAILY (1/D)
  8. CALCIUM + VITAMIN D [Concomitant]
     Dosage: 1200 MG, DAILY (1/D)
  9. PERCOCET [Concomitant]
     Dosage: 5 MG, AS NEEDED
  10. OXYCODONE HCL [Concomitant]
  11. TYLENOL/SCH/ [Concomitant]
  12. MULTI-VITAMIN [Concomitant]
     Dosage: UNK, DAILY (1/D)
  13. VITAMIN C [Concomitant]
     Dosage: 500 MG, DAILY (1/D)

REACTIONS (1)
  - DEATH [None]
